FAERS Safety Report 14341409 (Version 3)
Quarter: 2025Q1

REPORT INFORMATION
  Report Type: Report from Study
  Country: GR (occurrence: GR)
  Receive Date: 20180102
  Receipt Date: 20250206
  Transmission Date: 20250409
  Serious: Yes (Other)
  Sender: ROCHE
  Company Number: GR-ROCHE-2045993

PATIENT

DRUGS (1)
  1. PIRFENIDONE [Suspect]
     Active Substance: PIRFENIDONE
     Indication: Idiopathic pulmonary fibrosis
     Route: 065

REACTIONS (7)
  - Gastrointestinal disorder [Unknown]
  - Photosensitivity reaction [Unknown]
  - Rash [Unknown]
  - Hepatotoxicity [Unknown]
  - Nausea [Unknown]
  - Bone marrow oedema [Unknown]
  - Anal fistula [Unknown]
